FAERS Safety Report 8295265-2 (Version None)
Quarter: 2012Q2

REPORT INFORMATION
  Report Type: 
  Country: None (occurrence: None)
  Receive Date: 20120418
  Receipt Date: 20120409
  Transmission Date: 20120825
  Serious: Yes (Hospitalization, Other)
  Sender: FDA-Public Use
  Company Number: US-ASTRAZENECA-2010SE40660

PATIENT
  Age: 59 Year
  Sex: Female
  Weight: 86.2 kg

DRUGS (6)
  1. SEROQUEL [Suspect]
     Route: 048
     Dates: start: 20060101
  2. ZOLOFT [Concomitant]
     Indication: DEPRESSION
  3. SEROQUEL [Suspect]
     Indication: SLEEP DISORDER
     Route: 048
  4. SEROQUEL [Suspect]
     Route: 048
  5. METHADON HCL TAB [Concomitant]
     Indication: PAIN
  6. LASIX [Concomitant]

REACTIONS (7)
  - FATIGUE [None]
  - HAEMORRHOIDS [None]
  - PORTAL HYPERTENSION [None]
  - HEPATITIS C [None]
  - HEPATIC CIRRHOSIS [None]
  - NASOPHARYNGITIS [None]
  - LIVER DISORDER [None]
